FAERS Safety Report 22604271 (Version 1)
Quarter: 2023Q2

REPORT INFORMATION
  Report Type: Spontaneous
  Country: BG (occurrence: None)
  Receive Date: 20230615
  Receipt Date: 20230615
  Transmission Date: 20230722
  Serious: Yes (Other)
  Sender: FDA-Public Use
  Company Number: BG-ROCHE-3365167

PATIENT
  Age: 33 Year
  Sex: Female

DRUGS (1)
  1. OCREVUS [Suspect]
     Active Substance: OCRELIZUMAB
     Indication: Multiple sclerosis
     Dosage: NEXT INFUSION ON JUNE/2023
     Route: 065
     Dates: start: 202212

REACTIONS (2)
  - Agranulocytosis [Unknown]
  - Headache [Unknown]

NARRATIVE: CASE EVENT DATE: 20230501
